FAERS Safety Report 22644402 (Version 1)
Quarter: 2023Q2

REPORT INFORMATION
  Report Type: Spontaneous
  Country: VN (occurrence: None)
  Receive Date: 20230627
  Receipt Date: 20230627
  Transmission Date: 20230722
  Serious: Yes (Other)
  Sender: FDA-Public Use
  Company Number: VN-ROCHE-3374101

PATIENT
  Age: 62 Year
  Sex: Male

DRUGS (3)
  1. ATEZOLIZUMAB [Suspect]
     Active Substance: ATEZOLIZUMAB
     Indication: Small cell lung cancer
     Route: 041
  2. CARBOPLATIN [Suspect]
     Active Substance: CARBOPLATIN
     Indication: Small cell lung cancer
     Dosage: 5 MG/ML/MIN
     Route: 042
  3. ETOPOSIDE [Suspect]
     Active Substance: ETOPOSIDE
     Indication: Small cell lung cancer
     Dosage: 100 MG/M2
     Route: 042

REACTIONS (5)
  - Lymphadenopathy [Unknown]
  - Chest pain [Unknown]
  - Cough [Unknown]
  - Weight increased [Unknown]
  - COVID-19 [Unknown]
